FAERS Safety Report 4401123-3 (Version None)
Quarter: 2004Q3

REPORT INFORMATION
  Report Type: 
  Country: None (occurrence: None)
  Receive Date: 20040907
  Receipt Date: 20031107
  Transmission Date: 20050211
  Serious: No
  Sender: FDA-Public Use
  Company Number: US-BRISTOL-MYERS SQUIBB COMPANY-12430872

PATIENT
  Sex: Male

DRUGS (5)
  1. COUMADIN [Suspect]
     Indication: THROMBOSIS
     Dosage: 5 MG DAILY X 2 WKS TO START. INCREASED: 10MG QD X 2 D/WK + 5 MG 5 D/WK UNTIL 07NOV03.
     Route: 048
     Dates: start: 20030920
  2. LANOXIN [Concomitant]
  3. VASOTEC [Concomitant]
  4. LIPITOR [Concomitant]
  5. LASIX [Concomitant]

REACTIONS (1)
  - INTERNATIONAL NORMALISED RATIO DECREASED [None]
